FAERS Safety Report 9450508 (Version 2)
Quarter: 2013Q4

REPORT INFORMATION
  Report Type: Report from Study
  Country: US (occurrence: US)
  Receive Date: 20130809
  Receipt Date: 20131223
  Transmission Date: 20140711
  Serious: Yes (Death, Hospitalization, Other)
  Sender: FDA-Public Use
  Company Number: US-ELI_LILLY_AND_COMPANY-US201308002493

PATIENT
  Age: 70 Year
  Sex: Female
  Weight: 86.1 kg

DRUGS (6)
  1. GEMCITABINE HYDROCHLORIDE [Suspect]
     Indication: PANCREATIC CARCINOMA METASTATIC
     Dosage: 1000MG/M2, 2/W
     Route: 042
     Dates: start: 20130411
  2. OTHER PHARMA COMPANY INV DRUG [Suspect]
     Indication: PANCREATIC CARCINOMA METASTATIC
     Dosage: 200 MG, 2/W
     Route: 042
     Dates: start: 20130411
  3. NEXIUM [Concomitant]
     Dosage: UNK
     Dates: start: 2010
  4. XANAX [Concomitant]
     Dosage: UNK
     Dates: start: 2012
  5. LASIX [Concomitant]
     Dosage: UNK
     Dates: start: 20130423
  6. LOVENOX [Concomitant]
     Dosage: UNK
     Dates: start: 20130509

REACTIONS (4)
  - Renal failure [Fatal]
  - Anaemia [Fatal]
  - Neutropenia [Fatal]
  - Thrombocytopenia [Fatal]
